FAERS Safety Report 8247180 (Version 3)
Quarter: 2012Q4

REPORT INFORMATION
  Report Type: Report from Study
  Country: TR (occurrence: TR)
  Receive Date: 20111116
  Receipt Date: 20120928
  Transmission Date: 20130627
  Serious: Yes (Hospitalization)
  Sender: FDA-Public Use
  Company Number: PHHO2011TR17766

PATIENT
  Age: 60 Year
  Sex: Female
  Weight: 82.5 kg

DRUGS (6)
  1. ALISKIREN [Suspect]
     Indication: CARDIAC FAILURE ACUTE
     Dosage: 300 mg, UNK
     Route: 048
     Dates: start: 20110817, end: 20111102
  2. DESAL [Concomitant]
     Indication: CARDIAC FAILURE CHRONIC
     Dosage: 40 mg, UNK
     Dates: start: 2008, end: 20111104
  3. BELOC [Concomitant]
     Indication: CORONARY ARTERY DISEASE
     Dosage: 25 mg, UNK
     Dates: start: 20110813, end: 20111104
  4. DELIX [Concomitant]
     Indication: CARDIAC FAILURE CHRONIC
     Dosage: 2.5 mg, UNK
     Dates: start: 2008, end: 20111104
  5. CORDARONE [Concomitant]
     Indication: CARDIAC FAILURE CHRONIC
     Dosage: 0.25 mg, UNK
     Dates: start: 20110811, end: 20111104
  6. DIGOXIN [Concomitant]
     Indication: CARDIAC FAILURE CHRONIC
     Dosage: UNK
     Dates: start: 20111010, end: 20111019

REACTIONS (1)
  - Gastritis [Recovered/Resolved]
